FAERS Safety Report 6291675-3 (Version None)
Quarter: 2009Q3

REPORT INFORMATION
  Report Type: 
  Country: None (occurrence: None)
  Receive Date: 20090730
  Receipt Date: 20090721
  Transmission Date: 20100115
  Serious: Yes (Hospitalization)
  Sender: FDA-Public Use
  Company Number: JP-ABBOTT-07P-087-0357198-00

PATIENT
  Age: 51 Year
  Sex: Female

DRUGS (8)
  1. LEUPRORELIN DEPOT [Suspect]
     Indication: BREAST CANCER
     Route: 058
     Dates: start: 20060726
  2. LEUPRORELIN DEPOT [Suspect]
  3. TAMOXIFEN CITRATE [Suspect]
     Indication: MENOPAUSE
     Route: 048
     Dates: start: 20060726, end: 20070117
  4. TAMOXIFEN CITRATE [Suspect]
     Route: 048
     Dates: start: 20070202
  5. TAKEPRON [Concomitant]
     Indication: DRUG USE FOR UNKNOWN INDICATION
     Dates: start: 20070123
  6. RISEDRONATE SODIUM [Concomitant]
     Indication: DRUG USE FOR UNKNOWN INDICATION
     Dates: start: 20070124
  7. ALFACALCIDOL [Concomitant]
     Indication: DRUG USE FOR UNKNOWN INDICATION
     Dates: start: 20070123
  8. PURSENNID [Concomitant]
     Indication: CONSTIPATION
     Route: 048
     Dates: start: 20070123

REACTIONS (9)
  - CONJUNCTIVITIS BACTERIAL [None]
  - CONSTIPATION [None]
  - HORDEOLUM [None]
  - HOT FLUSH [None]
  - INJECTION SITE INDURATION [None]
  - INSOMNIA [None]
  - NASOPHARYNGITIS [None]
  - ORGANISING PNEUMONIA [None]
  - PYREXIA [None]
